FAERS Safety Report 5830529-0 (Version None)
Quarter: 2008Q3

REPORT INFORMATION
  Report Type: 
  Country: None (occurrence: None)
  Receive Date: 20080801
  Receipt Date: 20070627
  Transmission Date: 20090109
  Serious: Yes (Other)
  Sender: FDA-Public Use
  Company Number: US-BRISTOL-MYERS SQUIBB COMPANY-13828041

PATIENT
  Sex: Male
  Weight: 61 kg

DRUGS (3)
  1. COUMADIN [Suspect]
     Indication: CARDIAC OPERATION
     Dosage: MAY 2006: 8 MG X4DAYS, 6 MG 5TH DAY. FEB 2007:8 MG X 5DAYS, 6 MG ON 6TH DAY
     Dates: start: 20060501
  2. FLOVENT [Concomitant]
  3. SPIRIVA [Concomitant]

REACTIONS (1)
  - INTERNATIONAL NORMALISED RATIO FLUCTUATION [None]
